FAERS Safety Report 19448122 (Version 1)
Quarter: 2021Q2

REPORT INFORMATION
  Report Type: Spontaneous
  Country: US (occurrence: US)
  Receive Date: 20210622
  Receipt Date: 20210622
  Transmission Date: 20210717
  Serious: No
  Sender: FDA-Public Use
  Company Number: None

PATIENT
  Age: 55 Year
  Sex: Female
  Weight: 114.75 kg

DRUGS (8)
  1. ASENAPINE SUBLINGUAL TABLETS [Suspect]
     Active Substance: ASENAPINE
     Indication: BIPOLAR DISORDER
     Route: 060
     Dates: start: 20210320, end: 20210616
  2. BUPROPION. [Concomitant]
     Active Substance: BUPROPION
  3. ATORVASTATIN [Concomitant]
     Active Substance: ATORVASTATIN
  4. MELATONIN [Concomitant]
     Active Substance: MELATONIN
  5. CYCLOBENZAPRINE. [Concomitant]
     Active Substance: CYCLOBENZAPRINE
  6. METFORMIN HCL [Concomitant]
     Active Substance: METFORMIN HYDROCHLORIDE
  7. LEVOTHYROXINE. [Concomitant]
     Active Substance: LEVOTHYROXINE
  8. DICLOFENAC [Concomitant]
     Active Substance: DICLOFENAC

REACTIONS (10)
  - Product substitution issue [None]
  - Vertigo [None]
  - Dysphagia [None]
  - Joint swelling [None]
  - Pain in extremity [None]
  - Peripheral swelling [None]
  - Restless legs syndrome [None]
  - Application site pain [None]
  - Oral discomfort [None]
  - Muscle spasms [None]

NARRATIVE: CASE EVENT DATE: 20210401
